FAERS Safety Report 24908239 (Version 1)
Quarter: 2025Q1

REPORT INFORMATION
  Report Type: Spontaneous
  Country: MX (occurrence: MX)
  Receive Date: 20250131
  Receipt Date: 20250131
  Transmission Date: 20250409
  Serious: Yes (Other)
  Sender: NOVO NORDISK
  Company Number: MX-NOVOPROD-1357286

PATIENT
  Age: 31 Year
  Sex: Female
  Weight: 83 kg

DRUGS (4)
  1. SAXENDA [Suspect]
     Active Substance: LIRAGLUTIDE
     Route: 058
  2. SAXENDA [Suspect]
     Active Substance: LIRAGLUTIDE
     Indication: Obesity
     Route: 058
     Dates: start: 202411
  3. SAXENDA [Suspect]
     Active Substance: LIRAGLUTIDE
     Route: 058
     Dates: start: 202501, end: 202501
  4. SAXENDA [Suspect]
     Active Substance: LIRAGLUTIDE
     Route: 058

REACTIONS (3)
  - Cholecystectomy [Not Recovered/Not Resolved]
  - Gastritis [Unknown]
  - Inappropriate schedule of product administration [Unknown]

NARRATIVE: CASE EVENT DATE: 20241217
